FAERS Safety Report 11221832 (Version 3)
Quarter: 2017Q3

REPORT INFORMATION
  Report Type: Report from Study
  Country: GB (occurrence: GB)
  Receive Date: 20150626
  Receipt Date: 20170710
  Transmission Date: 20171127
  Serious: Yes (Hospitalization, Other)
  Sender: FDA-Public Use
  Company Number: GB-AMGEN-GBRSP2015061730

PATIENT
  Age: 77 Year
  Sex: Male

DRUGS (1)
  1. ARANESP [Suspect]
     Active Substance: DARBEPOETIN ALFA
     Indication: PRODUCT USED FOR UNKNOWN INDICATION
     Dosage: 40 MUG, Q3WK
     Route: 065

REACTIONS (3)
  - Unevaluable event [Unknown]
  - Infection [Unknown]
  - Haemodialysis [Not Recovered/Not Resolved]

NARRATIVE: CASE EVENT DATE: 201506
